FAERS Safety Report 5523024-X (Version None)
Quarter: 2007Q4

REPORT INFORMATION
  Report Type: 
  Country: None (occurrence: None)
  Receive Date: 20071116
  Receipt Date: 20071116
  Transmission Date: 20080405
  Serious: Yes (Other)
  Sender: FDA-Public Use
  Company Number: None

PATIENT
  Age: 67 Year
  Sex: Female
  Weight: 80.7403 kg

DRUGS (1)
  1. ACETAMINOPHEN [Suspect]
     Indication: MYALGIA
     Dosage: 500MG   ONCE  PO
     Route: 048
     Dates: start: 20071101, end: 20071101

REACTIONS (4)
  - GASTRIC DISORDER [None]
  - MALAISE [None]
  - MEDICATION ERROR [None]
  - REACTION TO DRUG EXCIPIENTS [None]
